FAERS Safety Report 13328627 (Version 1)
Quarter: 2017Q1

REPORT INFORMATION
  Report Type: Spontaneous
  Country: US (occurrence: US)
  Receive Date: 20170313
  Receipt Date: 20170313
  Transmission Date: 20170428
  Serious: No
  Sender: FDA-Public Use
  Company Number: US-JNJFOC-20170211706

PATIENT
  Age: 70 Year
  Sex: Male
  Weight: 92.99 kg

DRUGS (4)
  1. ZYRTEC-D [Suspect]
     Active Substance: CETIRIZINE HYDROCHLORIDE\PSEUDOEPHEDRINE HYDROCHLORIDE
     Indication: UPPER-AIRWAY COUGH SYNDROME
     Route: 048
  2. ZYRTEC [Concomitant]
     Active Substance: CETIRIZINE HYDROCHLORIDE
     Indication: UPPER-AIRWAY COUGH SYNDROME
     Dosage: 1 WEEK
     Route: 065
  3. ZYRTEC-D [Suspect]
     Active Substance: CETIRIZINE HYDROCHLORIDE\PSEUDOEPHEDRINE HYDROCHLORIDE
     Route: 048
  4. CALCIUM POLYCARBONATE [Concomitant]
     Indication: NUTRITIONAL SUPPLEMENTATION
     Dosage: 1 WEEK
     Route: 065

REACTIONS (4)
  - Therapeutic response unexpected [Unknown]
  - Product use issue [Recovering/Resolving]
  - Blood pressure increased [Recovering/Resolving]
  - Drug administration error [Recovering/Resolving]
